FAERS Safety Report 4934193-4 (Version None)
Quarter: 2006Q1

REPORT INFORMATION
  Report Type: 
  Country: None (occurrence: None)
  Receive Date: 20060301
  Receipt Date: 20060222
  Transmission Date: 20060701
  Serious: Yes (Other)
  Sender: FDA-Public Use
  Company Number: 2005079882

PATIENT
  Age: 65 Year
  Sex: Male
  Weight: 86.1834 kg

DRUGS (6)
  1. PREGABALIN (PREGABALIN) [Suspect]
     Indication: FIBROMYALGIA
     Dosage: 450 MG (2 IN 1 D), ORAL
     Route: 048
     Dates: start: 20050216
  2. VITAMIN E [Concomitant]
  3. ASPIRIN [Concomitant]
  4. MULTIVITAMIN [Concomitant]
  5. LIPITOR [Concomitant]
  6. COZAAR [Concomitant]

REACTIONS (3)
  - CONDUCTION DISORDER [None]
  - ELECTROCARDIOGRAM QT CORRECTED INTERVAL PROLONGED [None]
  - SINUS BRADYCARDIA [None]
